FAERS Safety Report 5052923-0 (Version None)
Quarter: 2006Q3

REPORT INFORMATION
  Report Type: 
  Country: None (occurrence: None)
  Receive Date: 20060717
  Receipt Date: 20060710
  Transmission Date: 20061208
  Serious: Yes (Hospitalization)
  Sender: FDA-Public Use
  Company Number: US-AVENTIS-200617154GDDC

PATIENT
  Age: 60 Year
  Sex: Male
  Weight: 91 kg

DRUGS (3)
  1. TAXOTERE [Suspect]
     Route: 042
     Dates: start: 20060626, end: 20060626
  2. ENOXAPARIN SODIUM [Suspect]
     Route: 058
     Dates: end: 20060703
  3. IRINOTECAN [Suspect]
     Route: 042
     Dates: start: 20060626, end: 20060626

REACTIONS (13)
  - ABDOMINAL DISTENSION [None]
  - BLOOD CREATININE INCREASED [None]
  - BLOOD UREA INCREASED [None]
  - BODY TEMPERATURE DECREASED [None]
  - HEART RATE INCREASED [None]
  - HYPOTENSION [None]
  - NEUTROPENIC INFECTION [None]
  - NEUTROPHIL COUNT DECREASED [None]
  - ORAL INTAKE REDUCED [None]
  - STAPHYLOCOCCAL INFECTION [None]
  - SYNCOPE [None]
  - URINE OUTPUT DECREASED [None]
  - WHITE BLOOD CELL COUNT DECREASED [None]
